FAERS Safety Report 14109244 (Version 2)
Quarter: 2017Q4

REPORT INFORMATION
  Report Type: Spontaneous
  Country: TR (occurrence: TR)
  Receive Date: 20171019
  Receipt Date: 20171101
  Transmission Date: 20180321
  Serious: Yes (Other)
  Sender: FDA-Public Use
  Company Number: TR-ROCHE-2004061

PATIENT
  Age: 10 Year
  Sex: Female
  Weight: 50.3 kg

DRUGS (8)
  1. L-THYROXINE SODIUM [Concomitant]
     Active Substance: LEVOTHYROXINE SODIUM
     Indication: HYPOTHYROIDISM
  2. HYDROCORTISONE. [Concomitant]
     Active Substance: HYDROCORTISONE
     Indication: ADRENAL INSUFFICIENCY
  3. ESTROGENS, CONJUGATED/PROGESTERONE [Concomitant]
     Indication: HYPOGONADISM
     Route: 065
  4. DESMOPRESSIN [Concomitant]
     Active Substance: DESMOPRESSIN
     Route: 045
  5. SOMATROPIN. [Suspect]
     Active Substance: SOMATROPIN
     Indication: ENZYME ABNORMALITY
     Route: 058
  6. DESMOPRESSIN [Concomitant]
     Active Substance: DESMOPRESSIN
     Route: 060
  7. ESTRADIOL. [Concomitant]
     Active Substance: ESTRADIOL
  8. DESMOPRESSIN [Concomitant]
     Active Substance: DESMOPRESSIN
     Indication: DIABETES INSIPIDUS
     Route: 065

REACTIONS (4)
  - Diabetic ketoacidosis [Unknown]
  - Intentional product use issue [Unknown]
  - Diabetes mellitus [Recovering/Resolving]
  - Off label use [Unknown]
